FAERS Safety Report 14684637 (Version 1)
Quarter: 2018Q1

REPORT INFORMATION
  Report Type: Spontaneous
  Country: NL (occurrence: NL)
  Receive Date: 20180327
  Receipt Date: 20180327
  Transmission Date: 20180509
  Serious: Yes (Other)
  Sender: FDA-Public Use
  Company Number: NL-TEVA-2018-NL-870878

PATIENT
  Age: 53 Year
  Sex: Male
  Weight: 80 kg

DRUGS (5)
  1. THIAMINE 25 MG [Concomitant]
     Dosage: 1DD1
  2. OLANZAPINE TABLET, 5 MG [Suspect]
     Active Substance: OLANZAPINE
     Indication: PRODUCT USED FOR UNKNOWN INDICATION
     Dosage: 1X PER DAG 1 TABLET
     Dates: start: 20071210
  3. CHOLECALCIFEROL 800 IE [Concomitant]
     Dosage: 1DD
  4. KALIUMCHLORIDE DRANK [Concomitant]
     Dosage: 3DD30ML
  5. BARACLUDE [Concomitant]
     Active Substance: ENTECAVIR
     Dosage: 1DD

REACTIONS (1)
  - Cataract [Not Recovered/Not Resolved]

NARRATIVE: CASE EVENT DATE: 20171001
